FAERS Safety Report 24254217 (Version 1)
Quarter: 2024Q3

REPORT INFORMATION
  Report Type: Report from Study
  Country: US (occurrence: US)
  Receive Date: 20240827
  Receipt Date: 20240827
  Transmission Date: 20241017
  Serious: Yes (Congenital Anomaly)
  Sender: AXSOME THERAPEUTICS
  Company Number: US-JAZZ-2021-US-007382

PATIENT
  Age: 4 Month
  Sex: Male
  Weight: 5.805 kg

DRUGS (2)
  1. SUNOSI [Suspect]
     Active Substance: SOLRIAMFETOL
     Indication: Foetal exposure during pregnancy
     Dosage: UNK
     Route: 064
  2. XYREM [Suspect]
     Active Substance: SODIUM OXYBATE
     Indication: Foetal exposure during pregnancy
     Dosage: UNK
     Route: 064

REACTIONS (2)
  - Pectus excavatum [Not Recovered/Not Resolved]
  - Postnatal growth restriction [Recovered/Resolved]

NARRATIVE: CASE EVENT DATE: 20210331
